FAERS Safety Report 16013807 (Version 7)
Quarter: 2020Q1

REPORT INFORMATION
  Report Type: Report from Study
  Country: IT (occurrence: IT)
  Receive Date: 20190227
  Receipt Date: 20200321
  Transmission Date: 20200409
  Serious: Yes (Other)
  Sender: FDA-Public Use
  Company Number: PHHY2019IT032651

PATIENT
  Age: 30 Year
  Sex: Female

DRUGS (6)
  1. DEURSIL [Concomitant]
     Active Substance: URSODIOL
     Indication: PROPHYLAXIS
     Dosage: 300 MG, UNK
     Route: 048
     Dates: start: 20180519
  2. DEURSIL [Concomitant]
     Active Substance: URSODIOL
     Dosage: 150 MG, UNK
     Route: 048
     Dates: start: 20181203
  3. DAYLETTE [Concomitant]
     Active Substance: DROSPIRENONE\ETHINYL ESTRADIOL
     Indication: CONTRACEPTION
     Dosage: UNK MG
     Route: 048
     Dates: start: 201809
  4. DOSTINEX [Concomitant]
     Active Substance: CABERGOLINE
     Dosage: 0.5 MG
     Route: 048
     Dates: start: 20200108
  5. SIGNIFOR LAR [Suspect]
     Active Substance: PASIREOTIDE PAMOATE
     Indication: ACROMEGALY
     Dosage: UNK
     Route: 065
  6. DOSTINEX [Concomitant]
     Active Substance: CABERGOLINE
     Indication: INSULIN-LIKE GROWTH FACTOR INCREASED
     Dosage: 0.25 MG, UNK
     Route: 048
     Dates: start: 20181203

REACTIONS (9)
  - Hyposideraemia [Not Recovered/Not Resolved]
  - Alopecia [Not Recovered/Not Resolved]
  - Vitamin D deficiency [Not Recovered/Not Resolved]
  - Vitamin B12 deficiency [Not Recovered/Not Resolved]
  - Influenza [Recovered/Resolved]
  - Nail discomfort [Not Recovered/Not Resolved]
  - Diabetes mellitus [Recovered/Resolved]
  - Impaired fasting glucose [Not Recovered/Not Resolved]
  - Ovarian cyst [Recovered/Resolved]

NARRATIVE: CASE EVENT DATE: 20180907
